FAERS Safety Report 15261716 (Version 1)
Quarter: 2018Q3

REPORT INFORMATION
  Report Type: Report from Study
  Country: US (occurrence: US)
  Receive Date: 20180809
  Receipt Date: 20180809
  Transmission Date: 20181010
  Serious: No
  Sender: FDA-Public Use
  Company Number: US-AEGERION PHARMACEUTICAL, INC-AEGR003441

PATIENT
  Age: 51 Year
  Sex: Female
  Weight: 86.17 kg

DRUGS (1)
  1. JUXTAPID [Suspect]
     Active Substance: LOMITAPIDE MESYLATE
     Indication: TYPE IIA HYPERLIPIDAEMIA
     Dosage: 5 MG, QD
     Route: 048
     Dates: start: 20130528

REACTIONS (3)
  - Nightmare [Not Recovered/Not Resolved]
  - Chest discomfort [Recovering/Resolving]
  - Varicose vein [Unknown]

NARRATIVE: CASE EVENT DATE: 2013
